FAERS Safety Report 7538823-2 (Version None)
Quarter: 2011Q2

REPORT INFORMATION
  Report Type: 
  Country: None (occurrence: None)
  Receive Date: 20110610
  Receipt Date: 20100108
  Transmission Date: 20111010
  Serious: Yes (Death, Hospitalization, Other)
  Sender: FDA-Public Use
  Company Number: US-BAYER-201010320NA

PATIENT
  Age: 73 Year
  Sex: Male
  Weight: 46.6 kg

DRUGS (28)
  1. TRASYLOL [Suspect]
     Dosage: 50 ML, Q1HR. TOTAL ADMINISTERED DURING SURGERY: 4 MILLION KIU
     Route: 042
     Dates: start: 20041014, end: 20041014
  2. ALBUTEROL SULFATE AUTOHALER [Concomitant]
  3. SYNTHROID [Concomitant]
  4. DOBUTAMINE HYDROCHLORIDE [Concomitant]
     Dosage: UNK
     Dates: start: 20041015
  5. LASIX [Concomitant]
     Dosage: 20 MG, QD
     Route: 048
  6. ANALGESICS [Concomitant]
     Indication: BACK PAIN
  7. HEPARIN [Concomitant]
  8. AZMACORT [Concomitant]
  9. PROTAMINE SULFATE [Concomitant]
     Dosage: 25CC
     Route: 042
     Dates: start: 20041012
  10. DOBUTREX [Concomitant]
     Dosage: UNK
  11. RED BLOOD CELLS [Concomitant]
  12. ATROVENT [Concomitant]
  13. LIDOCAINE [Concomitant]
     Dosage: 5 MG, UNK
     Route: 042
  14. SODIUM BICARBONATE [Concomitant]
     Dosage: 50MGEQ
     Route: 042
  15. MAGNESIUM SULFATE [Concomitant]
     Dosage: 2 MG, UNK
     Route: 042
  16. POTASSIUM [POTASSIUM] [Concomitant]
  17. PRIMACOR [Concomitant]
     Dosage: UNK
     Dates: start: 20041015
  18. THROMBIN LOCAL SOLUTION [Concomitant]
     Dosage: 5000 U, UNK
     Dates: start: 20041013
  19. TRASYLOL [Suspect]
     Dosage: 4 KIU+2 KIU, LOADING DOSE
     Dates: start: 20041012, end: 20041012
  20. LIDOCAINE [Concomitant]
     Dosage: 100 MG, UNK
     Route: 042
  21. PROPOFOL [Concomitant]
     Route: 042
  22. EPINEPHRINE [Concomitant]
     Dosage: UNK
     Dates: start: 20041015
  23. WHOLE BLOOD [Concomitant]
     Dosage: 8 U, UNK
     Route: 042
     Dates: start: 20041015
  24. TRASYLOL [Suspect]
     Indication: CORONARY ARTERY BYPASS
     Dosage: 1 ML, TEST DOSE
     Route: 042
     Dates: start: 20041012
  25. LASIX [Concomitant]
     Dosage: 20 MG, UNK
     Route: 042
  26. TRASYLOL [Suspect]
     Dosage: 100 ML, UNK
     Route: 042
     Dates: start: 20041012, end: 20041012
  27. TRASYLOL [Suspect]
     Dosage: UNK
     Route: 042
     Dates: start: 20041013, end: 20041013
  28. NITROGLYCERIN [Concomitant]

REACTIONS (12)
  - STRESS [None]
  - UNEVALUABLE EVENT [None]
  - RENAL FAILURE [None]
  - RENAL INJURY [None]
  - ANHEDONIA [None]
  - DEATH [None]
  - FEAR [None]
  - INJURY [None]
  - RENAL IMPAIRMENT [None]
  - EMOTIONAL DISTRESS [None]
  - PAIN [None]
  - ANXIETY [None]
